FAERS Safety Report 4398096-9 (Version None)
Quarter: 2004Q3

REPORT INFORMATION
  Report Type: 
  Country: None (occurrence: None)
  Receive Date: 20040713
  Receipt Date: 20040630
  Transmission Date: 20050211
  Serious: Yes (Life-Threatening, Hospitalization, Other)
  Sender: FDA-Public Use
  Company Number: 2004032901

PATIENT
  Age: 73 Year
  Sex: Female

DRUGS (4)
  1. ZELDOX (CAPSULES) (ZIPRASIDONE) [Suspect]
     Indication: DELUSION
     Dosage: 40 MG, ORAL
     Route: 048
     Dates: start: 20040330, end: 20040511
  2. ZELDOX (CAPSULES) (ZIPRASIDONE) [Suspect]
     Indication: SCHIZOPHRENIA
     Dosage: 40 MG, ORAL
     Route: 048
     Dates: start: 20040330, end: 20040511
  3. RISPERDAL [Concomitant]
  4. ACE INHIBITOR NOS (ACE INHIBITOR NOS) [Concomitant]

REACTIONS (2)
  - HYPERTENSIVE CRISIS [None]
  - RHABDOMYOLYSIS [None]
